FAERS Safety Report 8052399 (Version 4)
Quarter: 2013Q3

REPORT INFORMATION
  Report Type: Spontaneous
  Country: US (occurrence: US)
  Receive Date: 20110725
  Receipt Date: 20130806
  Transmission Date: 20140515
  Serious: Yes (Other)
  Sender: FDA-Public Use
  Company Number: US-ROCHE-769919

PATIENT
  Age: 16 Year
  Sex: Female
  Weight: 65.8 kg

DRUGS (4)
  1. ACCUTANE [Suspect]
     Indication: ACNE
     Route: 048
     Dates: start: 19991217, end: 200003
  2. ACCUTANE [Suspect]
     Dosage: IN DIVIDED DOSE
     Route: 048
  3. ACCUTANE [Suspect]
     Dosage: IN DIVIDED DOSE
     Route: 048
  4. ACCUTANE [Suspect]
     Dosage: IN DIVIDED DOSE,
     Route: 048

REACTIONS (8)
  - Proctitis ulcerative [Unknown]
  - Inflammatory bowel disease [Unknown]
  - Anxiety [Unknown]
  - Proteinuria [Unknown]
  - Blood triglycerides increased [Recovered/Resolved]
  - Acne [Unknown]
  - Dermatitis [Unknown]
  - Headache [Recovering/Resolving]
